FAERS Safety Report 22746223 (Version 3)
Quarter: 2023Q4

REPORT INFORMATION
  Report Type: Spontaneous
  Country: JP (occurrence: JP)
  Receive Date: 20230725
  Receipt Date: 20231213
  Transmission Date: 20240110
  Serious: Yes (Hospitalization, Other)
  Sender: FDA-Public Use
  Company Number: JP-BAYER-2023A096567

PATIENT
  Age: 93 Year
  Sex: Male

DRUGS (3)
  1. EYLEA [Suspect]
     Active Substance: AFLIBERCEPT
     Indication: Age-related macular degeneration
     Dosage: LEFT EYE, SOLUTION FOR INJECTION, STRENGTH: 40MG/ML
     Route: 031
     Dates: start: 20221027, end: 20221027
  2. OXYGEN [Concomitant]
     Active Substance: OXYGEN
     Indication: Emphysema
  3. OXYGEN [Concomitant]
     Active Substance: OXYGEN
     Indication: Oxygen therapy

REACTIONS (4)
  - Corneal perforation [Recovering/Resolving]
  - Dacryocystitis [Recovering/Resolving]
  - Blepharitis [Recovering/Resolving]
  - Keratopathy [Recovering/Resolving]

NARRATIVE: CASE EVENT DATE: 20221028
